FAERS Safety Report 23795847 (Version 3)
Quarter: 2025Q1

REPORT INFORMATION
  Report Type: Spontaneous
  Country: US (occurrence: US)
  Receive Date: 20240429
  Receipt Date: 20250105
  Transmission Date: 20250408
  Serious: No
  Sender: BIOGEN
  Company Number: US-BIOGEN-2024BI01261221

PATIENT
  Age: 22 Year
  Sex: Female

DRUGS (2)
  1. SPINRAZA [Suspect]
     Active Substance: NUSINERSEN
     Indication: Spinal muscular atrophy
     Route: 050
     Dates: start: 20230628, end: 20231108
  2. EVRYSDI [Suspect]
     Active Substance: RISDIPLAM
     Indication: Product used for unknown indication
     Route: 050

REACTIONS (8)
  - Asthenia [Unknown]
  - Hypersomnia [Unknown]
  - Musculoskeletal disorder [Unknown]
  - Tremor [Unknown]
  - Fatigue [Unknown]
  - Feeling abnormal [Unknown]
  - Cough [Unknown]
  - Muscular weakness [Unknown]

NARRATIVE: CASE EVENT DATE: 20241101
